FAERS Safety Report 6934794-8 (Version None)
Quarter: 2010Q3

REPORT INFORMATION
  Report Type: 
  Country: None (occurrence: None)
  Receive Date: 20100820
  Receipt Date: 20100805
  Transmission Date: 20110219
  Serious: Yes (Hospitalization)
  Sender: FDA-Public Use
  Company Number: PHHY2010MX52002

PATIENT
  Age: 77 Year
  Sex: Female

DRUGS (1)
  1. ZOLEDRONIC [Suspect]
     Indication: OSTEOPOROSIS
     Dosage: 5 MG/100ML
     Dates: start: 20090801

REACTIONS (5)
  - ABDOMINAL DISCOMFORT [None]
  - BLADDER DISORDER [None]
  - CONSTIPATION [None]
  - NEPHROLITHIASIS [None]
  - SURGERY [None]
